FAERS Safety Report 5378524-2 (Version None)
Quarter: 2007Q3

REPORT INFORMATION
  Report Type: 
  Country: None (occurrence: None)
  Receive Date: 20070702
  Receipt Date: 20070622
  Transmission Date: 20080115
  Serious: Yes (Hospitalization, Other)
  Sender: FDA-Public Use
  Company Number: TAP2007Q00226

PATIENT
  Age: 79 Year
  Sex: Male

DRUGS (16)
  1. LUPRON DEPOT-4 [Suspect]
     Indication: PROSTATE CANCER
     Dosage: 30 MG, 1 IN 4 M, INTRAMUSCULAR
     Route: 030
     Dates: start: 20040101
  2. ALTACE [Concomitant]
  3. DOCUSATE SODIUM                                   (DOCUSATE SODIUM) [Concomitant]
  4. FEROUS SULFATE                       (FERROUS SULFATE) [Concomitant]
  5. APO-HYDRO                 (HYDROCHLOROTHIAZIDE) [Concomitant]
  6. PANTOPRAZOLE SODIUM [Concomitant]
  7. DILTIAZEM [Concomitant]
  8. ACETAMINOPHEN [Concomitant]
  9. FLOVENT HFA               (FLUTICASONE PROPIONATE) [Concomitant]
  10. CALCIUM                   (CALCIUM) [Concomitant]
  11. COMBIVENT           (BREVA) [Concomitant]
  12. VITAMIN B1 TAB [Concomitant]
  13. APO-TEMAZEPAM               (TEMAZEPAM) [Concomitant]
  14. APO-LORAZEPAM              (LORAZEPAM) [Concomitant]
  15. VITAMIN B6 [Concomitant]
  16. VITAMIN D [Concomitant]

REACTIONS (13)
  - ABDOMINAL DISTENSION [None]
  - ABDOMINAL PAIN [None]
  - ASTHENIA [None]
  - BLOOD PRESSURE FLUCTUATION [None]
  - CONSTIPATION [None]
  - DIALYSIS [None]
  - GASTROINTESTINAL INFECTION [None]
  - HYPOAESTHESIA [None]
  - INTESTINAL PERFORATION [None]
  - MUSCULOSKELETAL STIFFNESS [None]
  - PAIN [None]
  - POST PROCEDURAL COMPLICATION [None]
  - RENAL FAILURE [None]
